FAERS Safety Report 17810598 (Version 1)
Quarter: 2020Q2

REPORT INFORMATION
  Report Type: Spontaneous
  Country: JP (occurrence: JP)
  Receive Date: 20200521
  Receipt Date: 20200521
  Transmission Date: 20200714
  Serious: Yes (Other)
  Sender: FDA-Public Use
  Company Number: NVSJ2020JP005067

PATIENT
  Age: 84 Year
  Sex: Male

DRUGS (1)
  1. EXELON PATCH [Suspect]
     Active Substance: RIVASTIGMINE
     Indication: FRONTOTEMPORAL DEMENTIA
     Dosage: PATCH10(CM2),  QD
     Route: 062

REACTIONS (4)
  - Disease progression [Unknown]
  - Product use in unapproved indication [Unknown]
  - Frontotemporal dementia [Unknown]
  - Drug ineffective for unapproved indication [Unknown]
